FAERS Safety Report 7477541-6 (Version None)
Quarter: 2011Q2

REPORT INFORMATION
  Report Type: 
  Country: None (occurrence: None)
  Receive Date: 20110511
  Receipt Date: 20110511
  Transmission Date: 20111010
  Serious: Yes (Other)
  Sender: FDA-Public Use
  Company Number: None

PATIENT
  Age: 59 Year
  Sex: Female
  Weight: 59.1 kg

DRUGS (23)
  1. FEROSEMIDE [Concomitant]
  2. ENOXAPARIN [Concomitant]
  3. LAMOTRIGINE [Concomitant]
  4. LISINOPRIL [Concomitant]
  5. VASOPRESSIN [Concomitant]
  6. NIMBEX [Concomitant]
  7. FENTANYL [Concomitant]
  8. INSULIN ASPART [Concomitant]
  9. LOPERAMIDE [Concomitant]
  10. NOREPINEPHRINE BITARTRATE [Concomitant]
  11. CLONAZEPAM [Concomitant]
  12. LORAZEPAM [Concomitant]
  13. PIPERACILLIN AND TAZOBACTAM [Concomitant]
  14. VANCOMYCIN [Suspect]
     Indication: PNEUMONIA
     Dosage: 1 GRAM 1750MG Q12 HOURS DAILY IV PIGGYBACK
     Route: 042
     Dates: start: 20110120, end: 20110206
  15. FERROUS SULFATE TAB [Concomitant]
  16. PROPOFOL [Concomitant]
  17. VANCOMYCIN [Suspect]
     Indication: PNEUMONIA
     Dosage: 1250MG Q12 HOURS IV PIGGYBACK
     Route: 042
     Dates: start: 20110105
  18. ONDANSETRON [Concomitant]
  19. CEFTRIAXONE [Concomitant]
  20. CLINDAMYCIN [Concomitant]
  21. METOPROLOL SUCCINATE [Concomitant]
  22. MOXIFLOXACIN [Concomitant]
  23. PANTOPRAZOLE [Concomitant]

REACTIONS (2)
  - PNEUMONIA [None]
  - HYPOXIA [None]
